FAERS Safety Report 24985230 (Version 2)
Quarter: 2025Q3

REPORT INFORMATION
  Report Type: Spontaneous
  Country: US (occurrence: US)
  Receive Date: 20250219
  Receipt Date: 20250820
  Transmission Date: 20251020
  Serious: Yes (Other)
  Sender: COOPERSURGICAL
  Company Number: US-COOPERSURGICAL, INC.-2025CPS000852

PATIENT
  Age: 39 Year
  Sex: Female
  Weight: 91.156 kg

DRUGS (2)
  1. PARAGARD T 380A [Suspect]
     Active Substance: COPPER
     Indication: Contraception
     Route: 015
     Dates: start: 20100810, end: 20200123
  2. EZETIMIBE [Concomitant]
     Active Substance: EZETIMIBE
     Dates: start: 1999

REACTIONS (23)
  - Reproductive complication associated with device [Not Recovered/Not Resolved]
  - Hysterectomy [Recovered/Resolved]
  - Uterine leiomyoma [Unknown]
  - Device breakage [Recovered/Resolved]
  - Foreign body in reproductive tract [Recovered/Resolved]
  - Complication of device removal [Recovered/Resolved]
  - Embedded device [Recovered/Resolved]
  - Emotional disorder [Unknown]
  - Vaginal discharge [Unknown]
  - Vulvovaginal pruritus [Unknown]
  - Complication associated with device [Recovered/Resolved]
  - Dysuria [Unknown]
  - Pollakiuria [Unknown]
  - Pelvic adhesions [Unknown]
  - Urinary tract infection [Unknown]
  - Bacterial vulvovaginitis [Unknown]
  - Abnormal uterine bleeding [Recovered/Resolved]
  - Pelvic pain [Unknown]
  - Vulvovaginal candidiasis [Unknown]
  - Vulvovaginitis trichomonal [Unknown]
  - Heavy menstrual bleeding [Recovered/Resolved]
  - Abdominal pain lower [Unknown]
  - Menstruation irregular [Recovered/Resolved]

NARRATIVE: CASE EVENT DATE: 20181030
